FAERS Safety Report 14834987 (Version 6)
Quarter: 2020Q2

REPORT INFORMATION
  Report Type: Spontaneous
  Country: US (occurrence: US)
  Receive Date: 20180501
  Receipt Date: 20200408
  Transmission Date: 20200713
  Serious: Yes (Hospitalization)
  Sender: FDA-Public Use
  Company Number: US-VIFOR (INTERNATIONAL) INC.-VIT-2018-04041

PATIENT
  Age: 72 Year
  Sex: Male

DRUGS (20)
  1. VELTASSA [Suspect]
     Active Substance: PATIROMER
     Indication: HYPERKALAEMIA
     Route: 048
     Dates: start: 20180321
  2. ASPIRIN. [Concomitant]
     Active Substance: ASPIRIN
  3. COREG [Concomitant]
     Active Substance: CARVEDILOL
  4. MULTIVITAMIN [Concomitant]
     Active Substance: VITAMINS
  5. COQ10 [Concomitant]
     Active Substance: UBIDECARENONE
  6. METANX [Concomitant]
     Active Substance: LEVOMEFOLATE CALCIUM\METHYLCOBALAMIN\PYRIDOXAL PHOSPHATE ANHYDROUS
  7. ALLOPURINOL. [Concomitant]
     Active Substance: ALLOPURINOL
  8. CRESTOR [Concomitant]
     Active Substance: ROSUVASTATIN CALCIUM
  9. VELTASSA [Suspect]
     Active Substance: PATIROMER
     Route: 048
     Dates: start: 20180418
  10. AMLODIPINE BESYLATE. [Concomitant]
     Active Substance: AMLODIPINE BESYLATE
  11. MUCINEX ALLERGY [Concomitant]
     Active Substance: FEXOFENADINE HYDROCHLORIDE
  12. SINGULAIR [Concomitant]
     Active Substance: MONTELUKAST SODIUM
  13. VELTASSA [Suspect]
     Active Substance: PATIROMER
     Route: 048
     Dates: start: 20180411
  14. LOVAZA [Concomitant]
     Active Substance: OMEGA-3-ACID ETHYL ESTERS
  15. HYDRALAZINE HCL [Concomitant]
     Active Substance: HYDRALAZINE HYDROCHLORIDE
  16. NOVOLOG [Concomitant]
     Active Substance: INSULIN ASPART
  17. POTASSIUM CITRATE. [Concomitant]
     Active Substance: POTASSIUM CITRATE
  18. TRESIBA [Concomitant]
     Active Substance: INSULIN DEGLUDEC
  19. LISINOPRIL. [Concomitant]
     Active Substance: LISINOPRIL
  20. VITAMIN D [Concomitant]
     Active Substance: VITAMIN D NOS

REACTIONS (4)
  - Pain in extremity [Unknown]
  - Diarrhoea [Unknown]
  - Angiogram [Unknown]
  - Product dose omission [Unknown]

NARRATIVE: CASE EVENT DATE: 2018
